FAERS Safety Report 20912087 (Version 1)
Quarter: 2022Q2

REPORT INFORMATION
  Report Type: Spontaneous
  Country: FR (occurrence: FR)
  Receive Date: 20220603
  Receipt Date: 20220603
  Transmission Date: 20220720
  Serious: Yes (Life-Threatening, Other)
  Sender: FDA-Public Use
  Company Number: FR-ORPHANEU-2022001728

PATIENT
  Age: 64 Year
  Sex: Female
  Weight: 95 kg

DRUGS (12)
  1. COTRIMOXAZOLE [Suspect]
     Active Substance: SULFAMETHOXAZOLE\TRIMETHOPRIM
     Indication: Antifungal prophylaxis
     Dosage: 2400 MG, QW (800 MILLIGRAM, TIW) , DURATION : 1MONTH
     Route: 048
     Dates: start: 20220309, end: 202204
  2. BACTRIM [Suspect]
     Active Substance: SULFAMETHOXAZOLE\TRIMETHOPRIM
     Indication: Product used for unknown indication
     Dosage: UNK , THERAPY START DATE AND END DATE : ASKU
     Route: 065
  3. ISTURISA [Suspect]
     Active Substance: OSILODROSTAT PHOSPHATE
     Indication: Paraneoplastic syndrome
     Dosage: UNK , THERAPY START DATE AND END DATE : ASKU
     Route: 065
  4. ISTURISA [Suspect]
     Active Substance: OSILODROSTAT PHOSPHATE
     Indication: Cushing^s syndrome
     Dosage: 10 MILLIGRAM DAILY; 10 MG, QD (5 MILLIGRAM, BID) , THERAPY END DATE : ASKU
     Route: 048
     Dates: start: 20220309
  5. INSULIN GLARGINE [Concomitant]
     Active Substance: INSULIN GLARGINE
     Indication: Diabetes mellitus
     Dosage: UNK
     Route: 065
     Dates: start: 20220201
  6. LANREOTIDE ACETATE [Concomitant]
     Active Substance: LANREOTIDE ACETATE
     Indication: Carcinoid tumour pulmonary
     Dosage: 120 MG (120 MILLIGRAM, EVERY 28 DAYS)
     Route: 065
     Dates: start: 20220301
  7. LANREOTIDE ACETATE [Concomitant]
     Active Substance: LANREOTIDE ACETATE
     Indication: Cushing^s syndrome
  8. HYDROCORTISONE [Concomitant]
     Active Substance: HYDROCORTISONE
     Indication: Cushing^s syndrome
     Dosage: 20 MILLIGRAM DAILY; 20 MG, QD
     Route: 065
     Dates: start: 20220322
  9. PROPRANOLOL [Concomitant]
     Active Substance: PROPRANOLOL HYDROCHLORIDE
     Indication: Hypertension
     Dosage: UNK
     Route: 065
  10. INSULIN ASPART [Concomitant]
     Active Substance: INSULIN ASPART
     Indication: Diabetes mellitus
     Dosage: UNK
     Route: 065
     Dates: start: 20220201
  11. APIXABAN [Concomitant]
     Active Substance: APIXABAN
     Indication: Atrial fibrillation
     Dosage: UNK
     Route: 065
     Dates: start: 20220201
  12. CABERGOLINE [Concomitant]
     Active Substance: CABERGOLINE
     Indication: Cushing^s syndrome
     Dosage: .5 MILLIGRAM DAILY; 0.5 MG, QD , DURATION : 42 DAYS
     Route: 065
     Dates: start: 20220309, end: 20220419

REACTIONS (2)
  - Drug eruption [Recovered/Resolved]
  - Adrenal insufficiency [Recovered/Resolved]

NARRATIVE: CASE EVENT DATE: 20220415
